FAERS Safety Report 5165281-8 (Version None)
Quarter: 2006Q4

REPORT INFORMATION
  Report Type: 
  Country: None (occurrence: None)
  Receive Date: 20061124
  Receipt Date: 20061116
  Transmission Date: 20070319
  Serious: Yes (Other)
  Sender: FDA-Public Use
  Company Number: 2006142170

PATIENT
  Age: 53 Year
  Sex: Male

DRUGS (2)
  1. LYRICA [Suspect]
     Indication: DYSAESTHESIA
     Dosage: 600 MG (300 MG, 2 IN 1 D), ORAL
     Route: 048
     Dates: start: 20040101
  2. NEURONTIN [Suspect]

REACTIONS (1)
  - PARKINSON'S DISEASE [None]
